FAERS Safety Report 11899800 (Version 3)
Quarter: 2016Q1

REPORT INFORMATION
  Report Type: Spontaneous
  Country: US (occurrence: US)
  Receive Date: 20160108
  Receipt Date: 20160129
  Transmission Date: 20160526
  Serious: No
  Sender: FDA-Public Use
  Company Number: US-GLAXOSMITHKLINE-US2016001761

PATIENT
  Age: 68 Year
  Sex: Male

DRUGS (2)
  1. FLOVENT DISKUS [Suspect]
     Active Substance: FLUTICASONE PROPIONATE
     Indication: EOSINOPHILIC OESOPHAGITIS
     Dosage: UNK, SPRAY 50 MCG
  2. FLOVENT [Suspect]
     Active Substance: FLUTICASONE PROPIONATE
     Indication: EOSINOPHILIC OESOPHAGITIS
     Dosage: UNK
     Route: 048
     Dates: start: 20160106

REACTIONS (2)
  - Incorrect route of drug administration [Unknown]
  - Off label use [Unknown]

NARRATIVE: CASE EVENT DATE: 20160106
